FAERS Safety Report 7423788-4 (Version None)
Quarter: 2011Q1

REPORT INFORMATION
  Report Type: 
  Country: None (occurrence: None)
  Receive Date: 20110331
  Receipt Date: 20110321
  Transmission Date: 20110831
  Serious: Yes (Other)
  Sender: FDA-Public Use
  Company Number: 2011PROUSA00171

PATIENT
  Age: 79 Year
  Sex: Male
  Weight: 71.3 kg

DRUGS (4)
  1. PROVENGE [Suspect]
     Indication: PROSTATE CANCER METASTATIC
     Dosage: 250 ML, SINGLE, INTRAVENOUS
     Route: 042
     Dates: start: 20101206, end: 20101206
  2. PROVENGE [Suspect]
     Dosage: 250 ML, SINGLE, INTRAVENOUS
     Route: 042
     Dates: start: 20101220, end: 20101220
  3. TYLENOL /000200001/ (PARACETAMOL) [Concomitant]
  4. BENADRYL [Concomitant]

REACTIONS (11)
  - CEREBROVASCULAR DISORDER [None]
  - VERTEBRAL ARTERY STENOSIS [None]
  - CEREBROVASCULAR ACCIDENT [None]
  - HAEMOGLOBIN DECREASED [None]
  - METASTASES TO MENINGES [None]
  - TONGUE ULCERATION [None]
  - PROSTATE CANCER [None]
  - CEREBRAL HYPOPERFUSION [None]
  - INTRACRANIAL ANEURYSM [None]
  - ASPARTATE AMINOTRANSFERASE INCREASED [None]
  - NEOPLASM PROGRESSION [None]
